FAERS Safety Report 12847504 (Version 2)
Quarter: 2016Q4

REPORT INFORMATION
  Report Type: Spontaneous
  Country: US (occurrence: US)
  Receive Date: 20161014
  Receipt Date: 20161114
  Transmission Date: 20170207
  Serious: Yes (Hospitalization, Other)
  Sender: FDA-Public Use
  Company Number: US-BELCHER PHARMACEUTICALS, LLC-2016VTS00163

PATIENT
  Age: 47 Year
  Sex: Female
  Weight: 84.81 kg

DRUGS (21)
  1. PROAIR HFA [Concomitant]
     Active Substance: ALBUTEROL SULFATE
     Dosage: 2 DOSAGE UNITS, AS NEEDED
  2. CRESTOR [Concomitant]
     Active Substance: ROSUVASTATIN CALCIUM
     Dosage: UNK UNK, 1X/DAY
     Route: 048
  3. GABAPENTIN. [Concomitant]
     Active Substance: GABAPENTIN
     Dosage: UNK, 2X/DAY
     Dates: start: 201609
  4. ATORVASTATIN [Concomitant]
     Active Substance: ATORVASTATIN
     Dosage: 20 MG, 1X/DAY
     Route: 048
  5. METFORMIN EXTENDED-RELEASE [Concomitant]
     Dosage: 1 TABLETS, 1X/DAY
     Route: 048
  6. CLONAZEPAM. [Concomitant]
     Active Substance: CLONAZEPAM
     Dosage: 1 MG, 3X/DAY
     Route: 048
  7. IPRATROPIUM-ALBUTEROL [Concomitant]
     Active Substance: ALBUTEROL\IPRATROPIUM
     Dosage: 1 DOSAGE UNITS, AS NEEDED
  8. METHOCARBAMOL. [Concomitant]
     Active Substance: METHOCARBAMOL
     Dosage: 750 MG, UP TO 3X/DAY
     Route: 048
  9. HYDROCORTISONE 2.5% RECTAL CREAM [Concomitant]
     Dosage: UNK, AS NEEDED
     Route: 061
  10. SEROQUEL [Concomitant]
     Active Substance: QUETIAPINE FUMARATE
     Dosage: 1 TABLETS, 1X/DAY
     Route: 048
  11. LINACLOTIDE [Concomitant]
     Active Substance: LINACLOTIDE
     Dosage: 145 ?G, 1X/DAY
     Route: 048
  12. NEXIUM [Concomitant]
     Active Substance: ESOMEPRAZOLE MAGNESIUM
     Dosage: UNK, 2X/DAY
     Route: 048
  13. CITALOPRAM [Concomitant]
     Active Substance: CITALOPRAM HYDROBROMIDE
     Dosage: 1 TABLETS, 1X/DAY
     Route: 048
  14. OXYCODONE-ACETAMINOPHEN [Concomitant]
     Active Substance: ACETAMINOPHEN\OXYCODONE HYDROCHLORIDE
  15. HYOSCYAMINE SULFATE. [Suspect]
     Active Substance: HYOSCYAMINE SULFATE
     Dosage: 2 TABLETS, UP TO 3X/DAY
     Route: 048
     Dates: start: 20160808, end: 20161001
  16. FLUTICASONE NASAL SPRAY [Concomitant]
     Active Substance: FLUTICASONE\FLUTICASONE PROPIONATE
     Dosage: 2 DOSAGE UNITS, 1X/DAY
  17. AMLODIPINE [Concomitant]
     Active Substance: AMLODIPINE BESYLATE
     Dosage: 10 MG, 1X/DAY
     Route: 048
  18. LOSARTAN. [Concomitant]
     Active Substance: LOSARTAN
     Dosage: UNK UNK, 1X/DAY
     Route: 048
  19. METOPROLOL SUCCINATE. [Concomitant]
     Active Substance: METOPROLOL SUCCINATE
     Dosage: 1 TABLETS, 1X/DAY
     Route: 048
  20. GABAPENTIN. [Concomitant]
     Active Substance: GABAPENTIN
     Dosage: 1 CAPSULES, 1X/DAY
     Route: 048
     Dates: end: 201609
  21. ZOFRAN [Concomitant]
     Active Substance: ONDANSETRON HYDROCHLORIDE
     Indication: NAUSEA
     Dosage: UNK, AS NEEDED

REACTIONS (9)
  - Drug ineffective [Unknown]
  - Decreased appetite [Not Recovered/Not Resolved]
  - Headache [Not Recovered/Not Resolved]
  - Sleep disorder [Unknown]
  - Surgery [Not Recovered/Not Resolved]
  - Abdominal pain upper [Not Recovered/Not Resolved]
  - Dizziness [Recovering/Resolving]
  - Abdominal discomfort [None]
  - Unevaluable event [None]

NARRATIVE: CASE EVENT DATE: 2016
